FAERS Safety Report 23954968 (Version 1)
Quarter: 2024Q2

REPORT INFORMATION
  Report Type: Spontaneous
  Country: JP (occurrence: JP)
  Receive Date: 20240610
  Receipt Date: 20240610
  Transmission Date: 20240716
  Serious: Yes (Hospitalization, Other)
  Sender: FDA-Public Use
  Company Number: None

PATIENT
  Age: 69 Year
  Sex: Male
  Weight: 43 kg

DRUGS (13)
  1. OLANZAPINE [Suspect]
     Active Substance: OLANZAPINE
     Indication: Product used for unknown indication
     Dosage: 1 DOSAGE FORM, ONCE PER DAY, BEFORE BEDTIME.
     Route: 065
  2. QUETIAPINE FUMARATE [Suspect]
     Active Substance: QUETIAPINE FUMARATE
     Indication: Product used for unknown indication
     Dosage: 1 DOSAGE FORM, ONCE PER DAY, BEFORE BEDTIME
     Route: 065
  3. QUETIAPINE FUMARATE [Suspect]
     Active Substance: QUETIAPINE FUMARATE
     Dosage: 2 DOSAGE FORM, 2 TIMES PER DAY, BEFORE BEDTIME
     Route: 065
  4. BROTIZOLAM [Suspect]
     Active Substance: BROTIZOLAM
     Indication: Product used for unknown indication
     Dosage: 2 DOSAGE FORM, ONCE PER DAY, BEFORE BEDTIME,
     Route: 065
  5. ESZOPICLONE [Suspect]
     Active Substance: ESZOPICLONE
     Indication: Insomnia
     Dosage: 1 DOSAGE FORM, ONCE PER DAY, BEFORE BEDTIME
     Route: 065
  6. ESZOPICLONE [Suspect]
     Active Substance: ESZOPICLONE
     Dosage: 1 DOSAGE FORM, AS NECESSARY, FOR INSOMNIA AS NEEDED
     Route: 065
  7. LITHIUM CARBONATE [Suspect]
     Active Substance: LITHIUM CARBONATE
     Indication: Product used for unknown indication
     Dosage: 3 DOSAGE FORM, 3 TIMES PER DAY, AFTER BREAKFAST, LUNCH, AND DINNER, 4
     Route: 065
  8. LITHIUM CARBONATE [Suspect]
     Active Substance: LITHIUM CARBONATE
     Indication: Product used for unknown indication
     Dosage: 1 DOSAGE FORM, ONCE PER DAY (AFTER DINNER)
  9. LORAZEPAM [Suspect]
     Active Substance: LORAZEPAM
     Indication: Insomnia
     Dosage: 1 DOSAGE FORM, AS NECESSARY
     Route: 065
  10. NITRAZEPAM [Suspect]
     Active Substance: NITRAZEPAM
     Indication: Product used for unknown indication
     Dosage: 1 DOSAGE FORM, ONCE PER DAY, BEFORE BEDTIME
     Route: 065
  11. ZOPICLONE [Suspect]
     Active Substance: ZOPICLONE
     Indication: Product used for unknown indication
     Dosage: 1 DOSAGE FORM, ONCE PER DAY,BEFORE BEDTIME
     Route: 065
  12. LANSOPRAZOLE [Concomitant]
     Active Substance: LANSOPRAZOLE
     Indication: Product used for unknown indication
     Dosage: 1 DOSAGE FORM, ONCE PER DAY, AFTER BREAKFAST
     Route: 065
  13. VALPROATE SODIUM [Concomitant]
     Active Substance: VALPROATE SODIUM
     Indication: Product used for unknown indication
     Dosage: 4 DOSAGE FORM, 3 TIMES PER DAY, 4 TABLETS AFTER BREAKFAST, LUNCH, AND DINNER
     Route: 065

REACTIONS (5)
  - Foreign body aspiration [Recovering/Resolving]
  - Bronchial obstruction [Recovering/Resolving]
  - Pneumonia [Recovering/Resolving]
  - Somnolence [Recovering/Resolving]
  - Dysphagia [Recovering/Resolving]
